FAERS Safety Report 10294560 (Version 1)
Quarter: 2014Q3

REPORT INFORMATION
  Report Type: Spontaneous
  Country: US (occurrence: US)
  Receive Date: 20140710
  Receipt Date: 20140710
  Transmission Date: 20150326
  Serious: Yes (Other)
  Sender: FDA-Public Use
  Company Number: US-IAC JAPAN XML-USA-2014-0111732

PATIENT
  Age: 32 Year
  Sex: Female

DRUGS (4)
  1. SUBOXONE [Suspect]
     Active Substance: BUPRENORPHINE HYDROCHLORIDE\NALOXONE HYDROCHLORIDE
     Indication: PRODUCT USED FOR UNKNOWN INDICATION
     Dosage: 6 MG, UNK
     Route: 065
  2. BUTRANS [Suspect]
     Active Substance: BUPRENORPHINE
     Indication: NECK PAIN
     Dosage: 10 MCG/HR, UNK
     Route: 062
     Dates: start: 20140228
  3. BUTRANS [Suspect]
     Active Substance: BUPRENORPHINE
     Indication: BACK PAIN
  4. KLONOPIN [Suspect]
     Active Substance: CLONAZEPAM
     Indication: PRODUCT USED FOR UNKNOWN INDICATION
     Dosage: 0.5 MG, UNK
     Route: 065

REACTIONS (8)
  - Mydriasis [Unknown]
  - Vertigo [Unknown]
  - Dizziness [Unknown]
  - Pharyngitis streptococcal [Recovered/Resolved]
  - Overdose [Unknown]
  - Mental impairment [Unknown]
  - Pyrexia [Recovered/Resolved]
  - Sedation [Unknown]

NARRATIVE: CASE EVENT DATE: 20140301
